FAERS Safety Report 5272734-0 (Version None)
Quarter: 2007Q1

REPORT INFORMATION
  Report Type: 
  Country: None (occurrence: None)
  Receive Date: 20070322
  Receipt Date: 20070316
  Transmission Date: 20070707
  Serious: Yes (Hospitalization)
  Sender: FDA-Public Use
  Company Number: US-GLAXOSMITHKLINE-A0498341A

PATIENT
  Age: 28 Year
  Sex: Male

DRUGS (5)
  1. MUPIROCIN [Suspect]
     Indication: STAPHYLOCOCCAL INFECTION
     Dosage: 2PCT TWICE PER DAY
     Route: 045
     Dates: start: 20040205, end: 20040209
  2. ADVAIR DISKUS 100/50 [Suspect]
     Indication: DRUG USE FOR UNKNOWN INDICATION
     Route: 055
  3. ALBUTEROL [Suspect]
     Indication: DRUG USE FOR UNKNOWN INDICATION
     Route: 055
  4. SINGULAIR [Concomitant]
  5. NEXIUM [Concomitant]

REACTIONS (19)
  - APNOEA [None]
  - BLISTER [None]
  - BRAIN DAMAGE [None]
  - CANDIDIASIS [None]
  - COGNITIVE DISORDER [None]
  - DRUG INTERACTION [None]
  - DYSGRAPHIA [None]
  - GINGIVAL BLEEDING [None]
  - HAEMOPTYSIS [None]
  - HERPES OESOPHAGITIS [None]
  - MEDICATION ERROR [None]
  - MEMORY IMPAIRMENT [None]
  - ORAL MUCOSAL BLISTERING [None]
  - PNEUMONIA ASPIRATION [None]
  - PYREXIA [None]
  - SUDDEN ONSET OF SLEEP [None]
  - TONGUE BLISTERING [None]
  - VIRAL INFECTION [None]
  - VOMITING [None]
